FAERS Safety Report 17299870 (Version 1)
Quarter: 2020Q1

REPORT INFORMATION
  Report Type: Spontaneous
  Country: US (occurrence: US)
  Receive Date: 20200122
  Receipt Date: 20200122
  Transmission Date: 20200409
  Serious: No
  Sender: FDA-Public Use
  Company Number: US-ALLERGAN-1933986US

PATIENT
  Sex: Female

DRUGS (2)
  1. RESTASIS [Suspect]
     Active Substance: CYCLOSPORINE
     Indication: PRODUCT USED FOR UNKNOWN INDICATION
     Dosage: UNK
     Route: 047
  2. EVENING PRIMROSE OIL [Concomitant]
     Active Substance: EVENING PRIMROSE OIL\HERBALS
     Dosage: 12-14 DF, UNK

REACTIONS (6)
  - Eye irritation [Unknown]
  - Expired product administered [Unknown]
  - Foreign body sensation in eyes [Unknown]
  - Madarosis [Unknown]
  - Multiple use of single-use product [Unknown]
  - Ocular hyperaemia [Unknown]
